FAERS Safety Report 5519771-6 (Version None)
Quarter: 2007Q4

REPORT INFORMATION
  Report Type: 
  Country: None (occurrence: None)
  Receive Date: 20071116
  Receipt Date: 20070813
  Transmission Date: 20080405
  Serious: No
  Sender: FDA-Public Use
  Company Number: A0669787A

PATIENT
  Age: 68 Year
  Sex: Female

DRUGS (3)
  1. COREG CR [Suspect]
     Indication: DRUG USE FOR UNKNOWN INDICATION
     Dosage: 40MG PER DAY
     Route: 048
     Dates: start: 20070601
  2. LISINOPRIL [Concomitant]
  3. DILTIAZEM [Concomitant]

REACTIONS (1)
  - ALOPECIA [None]
